FAERS Safety Report 13944405 (Version 1)
Quarter: 2017Q3

REPORT INFORMATION
  Report Type: Spontaneous
  Country: US (occurrence: US)
  Receive Date: 20170907
  Receipt Date: 20170907
  Transmission Date: 20171128
  Serious: No
  Sender: FDA-Public Use
  Company Number: US-ROCHE-1331113

PATIENT
  Age: 54 Year
  Sex: Female

DRUGS (1)
  1. RITUXAN [Suspect]
     Active Substance: RITUXIMAB
     Indication: NON-HODGKIN^S LYMPHOMA
     Route: 065
     Dates: start: 201203

REACTIONS (11)
  - Vision blurred [Not Recovered/Not Resolved]
  - Pain [Unknown]
  - Blister [Unknown]
  - Panic attack [Recovered/Resolved]
  - Herpes zoster [Unknown]
  - Muscle fatigue [Unknown]
  - Photopsia [Recovered/Resolved]
  - Pruritus [Unknown]
  - Urticaria [Not Recovered/Not Resolved]
  - Pruritus generalised [Unknown]
  - Vision blurred [Unknown]

NARRATIVE: CASE EVENT DATE: 201203
